FAERS Safety Report 22302904 (Version 1)
Quarter: 2023Q2

REPORT INFORMATION
  Report Type: Spontaneous
  Country: US (occurrence: US)
  Receive Date: 20230510
  Receipt Date: 20230510
  Transmission Date: 20230722
  Serious: Yes (Other)
  Sender: FDA-Public Use
  Company Number: US-PERRIGO-23US005411

PATIENT
  Age: 79 Year
  Sex: Female
  Weight: 63.492 kg

DRUGS (1)
  1. ACETAMINOPHEN [Suspect]
     Active Substance: ACETAMINOPHEN
     Indication: Headache
     Dosage: 1000 MG, SINGLE
     Route: 048
     Dates: start: 20230501, end: 20230501

REACTIONS (3)
  - Syncope [Recovered/Resolved]
  - Pallor [Recovered/Resolved]
  - Paraesthesia [Unknown]

NARRATIVE: CASE EVENT DATE: 20230501
